FAERS Safety Report 4843012-6 (Version None)
Quarter: 2005Q4

REPORT INFORMATION
  Report Type: 
  Country: None (occurrence: None)
  Receive Date: 20051201
  Receipt Date: 20051108
  Transmission Date: 20060501
  Serious: Yes (Death, Hospitalization)
  Sender: FDA-Public Use
  Company Number: DE-SANOFI-SYNTHELABO-A04200500964

PATIENT
  Sex: Female
  Weight: 58 kg

DRUGS (3)
  1. ELOXATIN [Suspect]
     Indication: COLORECTAL CANCER
     Route: 041
     Dates: start: 20051026, end: 20051026
  2. FOLINIC ACID [Concomitant]
     Indication: COLORECTAL CANCER
     Route: 041
     Dates: start: 20051026, end: 20051026
  3. FLUOROURACIL [Concomitant]
     Indication: COLORECTAL CANCER
     Route: 041
     Dates: start: 20051026, end: 20051026

REACTIONS (2)
  - MUCOSAL INFLAMMATION [None]
  - SEPTIC SHOCK [None]
